FAERS Safety Report 25887856 (Version 2)
Quarter: 2025Q4

REPORT INFORMATION
  Report Type: Report from Study
  Country: US (occurrence: US)
  Receive Date: 20251007
  Receipt Date: 20251013
  Transmission Date: 20260119
  Serious: Yes (Other)
  Sender: GLAXOSMITHKLINE
  Company Number: US-GLAXOSMITHKLINE INC-US2025115486

PATIENT
  Sex: Female

DRUGS (1)
  1. MEPOLIZUMAB [Suspect]
     Active Substance: MEPOLIZUMAB
     Indication: Asthma
     Dosage: UNK

REACTIONS (11)
  - Cardiac failure congestive [Unknown]
  - Arrhythmia [Not Recovered/Not Resolved]
  - Pneumonia [Unknown]
  - Left ventricular enlargement [Not Recovered/Not Resolved]
  - Eosinophilic oesophagitis [Not Recovered/Not Resolved]
  - Cardiac murmur [Unknown]
  - Dysphagia [Unknown]
  - Asthma [Unknown]
  - Multiple allergies [Unknown]
  - Dyspnoea exertional [Unknown]
  - Therapeutic response shortened [Unknown]
